FAERS Safety Report 6089673-8 (Version None)
Quarter: 2009Q1

REPORT INFORMATION
  Report Type: 
  Country: None (occurrence: None)
  Receive Date: 20090224
  Receipt Date: 20090219
  Transmission Date: 20090719
  Serious: No
  Sender: FDA-Public Use
  Company Number: US-B.I. PHARMACEUTICALS,INC./RIDGEFIELD-2009-BP-02172BP

PATIENT
  Sex: Male

DRUGS (1)
  1. FLOMAX [Suspect]
     Indication: BENIGN PROSTATIC HYPERPLASIA

REACTIONS (8)
  - FEAR [None]
  - INCOHERENT [None]
  - MUSCLE SPASMS [None]
  - NOCTURIA [None]
  - RESIDUAL URINE [None]
  - SENSATION OF BLOOD FLOW [None]
  - URINARY HESITATION [None]
  - URINE FLOW DECREASED [None]
